FAERS Safety Report 10803219 (Version 1)
Quarter: 2015Q1

REPORT INFORMATION
  Report Type: Report from Study
  Country: US (occurrence: US)
  Receive Date: 20150217
  Receipt Date: 20150217
  Transmission Date: 20150721
  Serious: Yes (Other)
  Sender: FDA-Public Use
  Company Number: US-BAYER-2015-023892

PATIENT

DRUGS (1)
  1. ASPIRIN. [Suspect]
     Active Substance: ASPIRIN
     Indication: DRUG PROVOCATION TEST
     Dosage: PROVOCATION DOSE 81 MG
     Route: 048

REACTIONS (6)
  - Nasal congestion [None]
  - Nausea [None]
  - Conjunctival hyperaemia [None]
  - Speech disorder [None]
  - Aspirin-exacerbated respiratory disease [None]
  - Lacrimation increased [None]
